FAERS Safety Report 17962831 (Version 1)
Quarter: 2020Q2

REPORT INFORMATION
  Report Type: Report from Study
  Country: None (occurrence: US)
  Receive Date: 20200630
  Receipt Date: 20200630
  Transmission Date: 20200714
  Serious: No
  Sender: FDA-Public Use
  Company Number: US-BIOVITRUM-2019US4598

PATIENT
  Sex: Male

DRUGS (7)
  1. KINERET [Suspect]
     Active Substance: ANAKINRA
     Route: 058
  2. BACTRIM [Concomitant]
     Active Substance: SULFAMETHOXAZOLE\TRIMETHOPRIM
  3. VITAMIN D WITH CALCIUM [Concomitant]
     Active Substance: CALCIUM\CHOLECALCIFEROL
  4. KINERET [Suspect]
     Active Substance: ANAKINRA
     Indication: PERICARDITIS
     Route: 058
     Dates: start: 20191127
  5. METHYLPREDNISOLONE. [Concomitant]
     Active Substance: METHYLPREDNISOLONE
  6. PRILOSEC [Concomitant]
     Active Substance: OMEPRAZOLE MAGNESIUM
  7. COLCRYS [Concomitant]
     Active Substance: COLCHICINE

REACTIONS (5)
  - Swelling [Unknown]
  - Oedema peripheral [Unknown]
  - Off label use [Not Recovered/Not Resolved]
  - Arthralgia [Unknown]
  - Epistaxis [Unknown]
